FAERS Safety Report 9491967 (Version 1)
Quarter: 2013Q3

REPORT INFORMATION
  Report Type: Spontaneous
  Country: US (occurrence: US)
  Receive Date: 20130830
  Receipt Date: 20130830
  Transmission Date: 20140515
  Serious: No
  Sender: FDA-Public Use
  Company Number: US-PFIZER INC-2013248869

PATIENT
  Age: 73 Year
  Sex: Female
  Weight: 70.75 kg

DRUGS (2)
  1. XELJANZ [Suspect]
     Indication: RHEUMATOID ARTHRITIS
     Dosage: 2X/DAY
     Route: 048
     Dates: start: 201306, end: 20130822
  2. INSULIN [Concomitant]
     Indication: DIABETES MELLITUS
     Dosage: 2X/DAY

REACTIONS (3)
  - Feeling abnormal [Unknown]
  - Eye disorder [Unknown]
  - Head discomfort [Unknown]
